FAERS Safety Report 25144754 (Version 1)
Quarter: 2025Q2

REPORT INFORMATION
  Report Type: Spontaneous
  Country: US (occurrence: None)
  Receive Date: 20250331
  Receipt Date: 20250331
  Transmission Date: 20250717
  Serious: Yes (Other)
  Sender: FDA-CTU
  Company Number: None

PATIENT
  Age: 57 Year
  Sex: Male
  Weight: 67.5 kg

DRUGS (5)
  1. KIRKLAND SIGNATURE MINOXIDIL [Suspect]
     Active Substance: MINOXIDIL
     Indication: Hair disorder
     Dosage: 1 ML TWICE A DAY TOPICAL
     Route: 061
     Dates: start: 20250318, end: 20250329
  2. FINASTERIDE [Concomitant]
     Active Substance: FINASTERIDE
  3. Complex B vitamin [Concomitant]
  4. VITAMINS [Concomitant]
     Active Substance: VITAMINS
  5. 5-HTP [Concomitant]

REACTIONS (6)
  - Pruritus [None]
  - Rash [None]
  - Rash [None]
  - Rash [None]
  - Swelling face [None]
  - Swelling of eyelid [None]

NARRATIVE: CASE EVENT DATE: 20250330
